FAERS Safety Report 8083740-5 (Version None)
Quarter: 2012Q1

REPORT INFORMATION
  Report Type: 
  Country: None (occurrence: None)
  Receive Date: 20120127
  Receipt Date: 20110122
  Transmission Date: 20120608
  Serious: No
  Sender: FDA-Public Use
  Company Number: US-ABBOTT-11P-163-0700106-00

PATIENT
  Age: 69 Year
  Sex: Female

DRUGS (8)
  1. HYDROXYCHLOROQUINE SULFATE [Concomitant]
     Indication: RHEUMATOID ARTHRITIS
  2. HUMIRA [Suspect]
     Indication: RHEUMATOID ARTHRITIS
     Dates: start: 20101101
  3. PREDNISONE TAB [Concomitant]
     Indication: PRODUCT USED FOR UNKNOWN INDICATION
  4. BETACAROTENE [Concomitant]
     Indication: EYE DISORDER
     Dosage: DAILY
  5. LISINOPRIL [Concomitant]
     Indication: HYPERTENSION
  6. LOVAZA [Concomitant]
     Indication: PRODUCT USED FOR UNKNOWN INDICATION
  7. SEROTONIN [Concomitant]
     Indication: DEPRESSION
     Dosage: 100MG 1/2 TABLET DAILY
  8. ACTOS [Concomitant]
     Indication: DIABETES MELLITUS

REACTIONS (3)
  - EAR INFECTION [None]
  - SCRATCH [None]
  - RHINORRHOEA [None]
